FAERS Safety Report 9547087 (Version 1)
Quarter: 2013Q3

REPORT INFORMATION
  Report Type: Report from Study
  Country: BR (occurrence: BR)
  Receive Date: 20130924
  Receipt Date: 20130924
  Transmission Date: 20140515
  Serious: Yes (Life-Threatening)
  Sender: FDA-Public Use
  Company Number: PHHY2013BR105764

PATIENT
  Sex: Female

DRUGS (1)
  1. DIOVAN [Suspect]
     Indication: BLOOD PRESSURE ABNORMAL
     Dosage: 1 DF, (320) A DAY
     Dates: start: 201208, end: 201306

REACTIONS (4)
  - Cerebrovascular accident [Recovering/Resolving]
  - Sensory disturbance [Recovering/Resolving]
  - Local swelling [Recovering/Resolving]
  - Swelling [Recovering/Resolving]
